FAERS Safety Report 9961549 (Version 2)
Quarter: 2014Q1

REPORT INFORMATION
  Report Type: Spontaneous
  Country: US (occurrence: US)
  Receive Date: 20140305
  Receipt Date: 20140318
  Transmission Date: 20141002
  Serious: Yes (Death)
  Sender: FDA-Public Use
  Company Number: US-ACTELION-A-US2014-95463

PATIENT
  Age: 72 Year
  Sex: Female

DRUGS (4)
  1. TRACLEER [Suspect]
     Indication: PULMONARY ARTERIAL HYPERTENSION
     Dosage: UNK
     Route: 048
     Dates: end: 20140216
  2. COUMADIN [Concomitant]
  3. METOLAZONE [Concomitant]
  4. LASIX [Concomitant]

REACTIONS (4)
  - Respiratory failure [Fatal]
  - Cor pulmonale [Fatal]
  - Right ventricular failure [Fatal]
  - Renal failure acute [Fatal]
